FAERS Safety Report 9251962 (Version 2)
Quarter: 2013Q2

REPORT INFORMATION
  Report Type: Spontaneous
  Country: JP (occurrence: JP)
  Receive Date: 20130424
  Receipt Date: 20130523
  Transmission Date: 20140414
  Serious: Yes (Other)
  Sender: FDA-Public Use
  Company Number: JP-PFIZER INC-2013127954

PATIENT
  Age: 60 Year
  Sex: Male

DRUGS (6)
  1. ADRIACIN [Suspect]
     Indication: LYMPHOMA
  2. GRAN [Suspect]
     Indication: LYMPHOMA
  3. PREDNISOLONE [Suspect]
     Indication: LYMPHOMA
     Route: 048
  4. CYCLOPHOSPHAMIDE HYDRATE [Concomitant]
     Indication: LYMPHOMA
  5. RITUXIMAB [Concomitant]
     Indication: LYMPHOMA
  6. ONCOVIN [Concomitant]
     Indication: LYMPHOMA

REACTIONS (1)
  - Osteonecrosis [Unknown]
